FAERS Safety Report 15971797 (Version 5)
Quarter: 2019Q3

REPORT INFORMATION
  Report Type: Report from Study
  Country: None (occurrence: CA)
  Receive Date: 20190215
  Receipt Date: 20190723
  Transmission Date: 20191004
  Serious: Yes (Hospitalization, Other)
  Sender: FDA-Public Use
  Company Number: CA-ABBVIE-19K-028-2625481-00

PATIENT
  Age: 63 Year
  Sex: Female

DRUGS (2)
  1. HUMIRA [Suspect]
     Active Substance: ADALIMUMAB
     Indication: CROHN^S DISEASE
     Route: 058
     Dates: start: 20170912, end: 20190108
  2. HUMIRA [Suspect]
     Active Substance: ADALIMUMAB
     Route: 058
     Dates: start: 2019

REACTIONS (15)
  - Oedema [Unknown]
  - Intestinal perforation [Unknown]
  - Inflammation [Not Recovered/Not Resolved]
  - Gastrointestinal infection [Unknown]
  - Hospitalisation [Unknown]
  - Anal fissure [Recovered/Resolved]
  - Gastrointestinal scarring [Not Recovered/Not Resolved]
  - Diverticulum [Not Recovered/Not Resolved]
  - Colitis [Not Recovered/Not Resolved]
  - Faecal calprotectin increased [Not Recovered/Not Resolved]
  - Laparotomy [Unknown]
  - Diverticulitis [Not Recovered/Not Resolved]
  - Immunosuppression [Unknown]
  - Intestinal stenosis [Not Recovered/Not Resolved]
  - Dermatitis [Not Recovered/Not Resolved]

NARRATIVE: CASE EVENT DATE: 201809
